FAERS Safety Report 8108701-9 (Version None)
Quarter: 2012Q1

REPORT INFORMATION
  Report Type: 
  Country: None (occurrence: None)
  Receive Date: 20120202
  Receipt Date: 20120123
  Transmission Date: 20120608
  Serious: Yes (Hospitalization)
  Sender: FDA-Public Use
  Company Number: DE-PFIZER INC-2010091837

PATIENT
  Age: 63 Year
  Sex: Male

DRUGS (12)
  1. PREDNISONE TAB [Suspect]
     Indication: PROSTATE CANCER
     Dosage: 5 MG, 2X/DAY
     Route: 048
     Dates: start: 20100429, end: 20100812
  2. CALCIUM [Concomitant]
     Dosage: UNK
     Route: 048
     Dates: start: 20100706
  3. PANTOPRAZOLE [Concomitant]
     Dosage: 20 MG, 1X/DAY
     Route: 048
     Dates: start: 20100706
  4. COLECALCIFEROL [Concomitant]
     Dosage: 500 IU, 1X/DAY
     Route: 048
     Dates: start: 20100706
  5. AMLODIPINE [Concomitant]
     Dosage: 10 MG, 1X/DAY
     Route: 048
     Dates: start: 20100510
  6. VITAMIN B-12 [Concomitant]
  7. METOCLOPRAMIDE [Concomitant]
     Dosage: 20 DF, AS NEEDED
     Route: 048
     Dates: start: 20090401
  8. CLOPIDOGREL [Concomitant]
     Dosage: 75 MG, 1X/DAY
     Route: 048
     Dates: start: 20100706
  9. LIDOCAINE [Concomitant]
     Dosage: AS NEEDED
     Route: 048
     Dates: start: 20100706
  10. DREISAFER [Concomitant]
  11. SUNITINIB MALATE [Suspect]
     Indication: PROSTATE CANCER
     Dosage: 37.5 MG, 1X/DAY
     Route: 048
     Dates: start: 20100429, end: 20100719
  12. FOLIC ACID [Concomitant]

REACTIONS (1)
  - ANAL ULCER [None]
